APPROVED DRUG PRODUCT: STREPTOMYCIN SULFATE
Active Ingredient: STREPTOMYCIN SULFATE
Strength: EQ 500MG BASE/ML
Dosage Form/Route: INJECTABLE;INJECTION
Application: A060684 | Product #001
Applicant: JOHN D COPANOS AND CO INC
Approved: Approved Prior to Jan 1, 1982 | RLD: No | RS: No | Type: DISCN